FAERS Safety Report 4711202-9 (Version None)
Quarter: 2005Q3

REPORT INFORMATION
  Report Type: 
  Country: None (occurrence: None)
  Receive Date: 20050711
  Receipt Date: 20050628
  Transmission Date: 20060218
  Serious: Yes (Other)
  Sender: FDA-Public Use
  Company Number: 2005090330

PATIENT
  Age: 56 Year
  Sex: Female

DRUGS (7)
  1. CELEBREX [Suspect]
     Indication: RHEUMATOID ARTHRITIS
  2. RELPAX [Suspect]
     Indication: MIGRAINE
     Dosage: 20 MG, AS NECESSARY), ORAL
     Route: 048
     Dates: start: 20050101
  3. CLINDAMYCIN HYDROCHLORIDE [Suspect]
     Indication: PROSTHESIS USER
  4. XANAX [Concomitant]
  5. HYDROCODONE BITARTRATE [Concomitant]
  6. FLUCONAZOLE [Concomitant]
  7. PREVACID [Concomitant]

REACTIONS (12)
  - AURA [None]
  - BODY HEIGHT DECREASED [None]
  - BONE DISORDER [None]
  - DISEASE RECURRENCE [None]
  - DRUG INEFFECTIVE [None]
  - GASTRIC DISORDER [None]
  - HIP ARTHROPLASTY [None]
  - KNEE ARTHROPLASTY [None]
  - MENOPAUSE [None]
  - MIGRAINE [None]
  - ORAL CANDIDIASIS [None]
  - SHOULDER ARTHROPLASTY [None]
